FAERS Safety Report 17135267 (Version 2)
Quarter: 2019Q4

REPORT INFORMATION
  Report Type: Spontaneous
  Country: JP (occurrence: JP)
  Receive Date: 20191210
  Receipt Date: 20191226
  Transmission Date: 20200122
  Serious: No
  Sender: FDA-Public Use
  Company Number: JP-JNJFOC-20191200610

PATIENT
  Age: 35 Year
  Sex: Female
  Weight: 46.2 kg

DRUGS (1)
  1. SIMPONI [Suspect]
     Active Substance: GOLIMUMAB
     Indication: RHEUMATOID ARTHRITIS
     Route: 058
     Dates: start: 20190507

REACTIONS (1)
  - Administration site bruise [Recovered/Resolved]

NARRATIVE: CASE EVENT DATE: 20191003
